FAERS Safety Report 5069675-0 (Version None)
Quarter: 2006Q3

REPORT INFORMATION
  Report Type: 
  Country: None (occurrence: None)
  Receive Date: 20060802
  Receipt Date: 20060802
  Transmission Date: 20061208
  Serious: Yes (Hospitalization)
  Sender: FDA-Public Use
  Company Number: None

PATIENT
  Age: 44 Year
  Sex: Male
  Weight: 83 kg

DRUGS (8)
  1. ZOSYN [Suspect]
     Indication: PNEUMONIA
     Dosage: 4.5 GM ONCE IV
     Route: 042
     Dates: start: 20060622, end: 20060622
  2. CLOZARIL [Concomitant]
  3. DEPAKOTE [Concomitant]
  4. LEVOTHYROXINE SODIUM [Concomitant]
  5. CLINDAMYCIN [Concomitant]
  6. LEVAQUIN [Concomitant]
  7. CLINDAMYCIN [Concomitant]
  8. LEVAQUIN [Concomitant]

REACTIONS (2)
  - PALLOR [None]
  - RASH ERYTHEMATOUS [None]
